FAERS Safety Report 9520030 (Version 1)
Quarter: 2013Q1

REPORT INFORMATION
  Report Type: Spontaneous
  Country: US (occurrence: None)
  Receive Date: 20130305
  Receipt Date: 20130305
  Transmission Date: 20140127
  Serious: Yes (Other)
  Sender: FDA-Public Use
  Company Number: 163-21880-12083429

PATIENT
  Age: 86 Year
  Sex: Female

DRUGS (4)
  1. REVLIMID [Suspect]
     Indication: PLASMA CELL MYELOMA
     Dosage: 1 IN 1 D
     Route: 048
     Dates: start: 201206
  2. PROMETHAZINE HCL (PROMETHAZINE HYDROCHLORIDE) [Concomitant]
  3. PRILOSEC [Concomitant]
  4. MIRALAX [Concomitant]

REACTIONS (3)
  - Night sweats [None]
  - Drug intolerance [None]
  - Fatigue [None]
